FAERS Safety Report 22684925 (Version 3)
Quarter: 2023Q4

REPORT INFORMATION
  Report Type: Report from Study
  Country: US (occurrence: US)
  Receive Date: 20230710
  Receipt Date: 20231226
  Transmission Date: 20240109
  Serious: Yes (Hospitalization)
  Sender: FDA-Public Use
  Company Number: US-ABBVIE-5317252

PATIENT
  Sex: Female

DRUGS (2)
  1. SKYRIZI [Suspect]
     Active Substance: RISANKIZUMAB-RZAA
     Indication: Psoriasis
     Dosage: FORM STRENGTH: 150MG
     Route: 058
     Dates: start: 2022
  2. SKYRIZI [Suspect]
     Active Substance: RISANKIZUMAB-RZAA
     Dosage: FORM STRENGTH: 150MG
     Route: 058
     Dates: start: 20200605

REACTIONS (5)
  - Arrhythmia [Unknown]
  - Headache [Unknown]
  - Cerebral cyst [Unknown]
  - Blood pressure increased [Unknown]
  - Dizziness [Unknown]
